FAERS Safety Report 6822263-5 (Version None)
Quarter: 2010Q3

REPORT INFORMATION
  Report Type: 
  Country: None (occurrence: None)
  Receive Date: 20100707
  Receipt Date: 20100707
  Transmission Date: 20110219
  Serious: Yes (Other)
  Sender: FDA-Public Use
  Company Number: None

PATIENT
  Sex: Female

DRUGS (1)
  1. FORTEO [Suspect]
     Indication: BONE DENSITY DECREASED
     Dosage: 20 MCG QD INJ-SQ
     Dates: start: 20100304, end: 20100311

REACTIONS (3)
  - BONE PAIN [None]
  - INSOMNIA [None]
  - NAUSEA [None]
